FAERS Safety Report 4973134-0 (Version None)
Quarter: 2006Q2

REPORT INFORMATION
  Report Type: 
  Country: None (occurrence: None)
  Receive Date: 20060414
  Receipt Date: 20050922
  Transmission Date: 20061013
  Serious: Yes (Hospitalization)
  Sender: FDA-Public Use
  Company Number: US-MERCK-0509USA03609

PATIENT
  Age: 64 Year
  Sex: Male
  Weight: 105 kg

DRUGS (1)
  1. VIOXX [Suspect]
     Indication: MENISCUS LESION
     Route: 048
     Dates: start: 20011101, end: 20040901

REACTIONS (7)
  - ARRHYTHMIA [None]
  - ARTERIAL DISORDER [None]
  - FALL [None]
  - HEART INJURY [None]
  - ROTATOR CUFF SYNDROME [None]
  - THROMBOSIS [None]
  - VASCULAR INJURY [None]
